FAERS Safety Report 24444836 (Version 2)
Quarter: 2024Q4

REPORT INFORMATION
  Report Type: Report from Study
  Country: US (occurrence: US)
  Receive Date: 20241016
  Receipt Date: 20241017
  Transmission Date: 20250114
  Serious: No
  Sender: ROCHE
  Company Number: US-ROCHE-2934850

PATIENT
  Age: 47 Year
  Sex: Male

DRUGS (8)
  1. RITUXAN [Suspect]
     Active Substance: RITUXIMAB
     Indication: Immune system disorder
     Dosage: DATE OF SERVICE: 20/SEP/2021, 27/SEP/2021, 04/OCT/2021, 11/OCT/2021, 13/JAN/2023, 27/JAN/2023, 28/JU
     Route: 041
  2. RITUXAN [Suspect]
     Active Substance: RITUXIMAB
     Indication: Immunoglobulin G4 related disease
  3. RITUXAN [Suspect]
     Active Substance: RITUXIMAB
     Indication: Arthralgia
  4. RITUXAN [Suspect]
     Active Substance: RITUXIMAB
     Indication: Rash
  5. XOLAIR [Suspect]
     Active Substance: OMALIZUMAB
     Indication: Idiopathic urticaria
     Route: 058
  6. XOLAIR [Suspect]
     Active Substance: OMALIZUMAB
  7. ACETAMINOPHEN [Concomitant]
     Active Substance: ACETAMINOPHEN
     Dosage: 975 MG PO ONCE
  8. DIPHENHYDRAMINE [Concomitant]
     Active Substance: DIPHENHYDRAMINE
     Dosage: 50 MG PO ONCE

REACTIONS (2)
  - Off label use [Unknown]
  - No adverse event [Unknown]
